FAERS Safety Report 4491129-0 (Version None)
Quarter: 2004Q3

REPORT INFORMATION
  Report Type: 
  Country: None (occurrence: None)
  Receive Date: 20040927
  Receipt Date: 20040728
  Transmission Date: 20050211
  Serious: No
  Sender: FDA-Public Use
  Company Number: USA040773993

PATIENT
  Age: 14 Year
  Sex: Male
  Weight: 111 kg

DRUGS (1)
  1. STRATTERA [Suspect]
     Indication: ATTENTION DEFICIT/HYPERACTIVITY DISORDER
     Dosage: 40MG/ 1 DAY
     Dates: start: 20040727

REACTIONS (5)
  - AGITATION [None]
  - ANXIETY [None]
  - DECREASED APPETITE [None]
  - NAUSEA [None]
  - VOMITING [None]
